FAERS Safety Report 13404069 (Version 1)
Quarter: 2017Q2

REPORT INFORMATION
  Report Type: Spontaneous
  Country: IT (occurrence: IT)
  Receive Date: 20170405
  Receipt Date: 20170405
  Transmission Date: 20170830
  Serious: Yes (Other)
  Sender: FDA-Public Use
  Company Number: IT-AUROBINDO-AUR-APL-2017-31921

PATIENT
  Age: 71 Year
  Sex: Female
  Weight: 51 kg

DRUGS (2)
  1. SARGENOR [Concomitant]
     Indication: PRODUCT USED FOR UNKNOWN INDICATION
     Route: 065
  2. ACICLOVIR TABLETS [Suspect]
     Active Substance: ACYCLOVIR
     Indication: ANTIVIRAL PROPHYLAXIS
     Dosage: 400 MCG, DAILY
     Route: 048
     Dates: start: 20160629

REACTIONS (4)
  - Conjunctivitis bacterial [Recovering/Resolving]
  - Eye discharge [Recovering/Resolving]
  - Ocular hyperaemia [Recovering/Resolving]
  - Eye pruritus [Recovering/Resolving]

NARRATIVE: CASE EVENT DATE: 20160629
